FAERS Safety Report 24803315 (Version 1)
Quarter: 2025Q1

REPORT INFORMATION
  Report Type: Spontaneous
  Country: CL (occurrence: CL)
  Receive Date: 20250103
  Receipt Date: 20250103
  Transmission Date: 20250408
  Serious: No
  Sender: ALKEM
  Company Number: CL-ALKEM LABORATORIES LIMITED-CL-ALKEM-2024-12541

PATIENT
  Weight: 38 kg

DRUGS (1)
  1. TACROLIMUS [Suspect]
     Active Substance: TACROLIMUS
     Indication: Renal transplant
     Route: 065

REACTIONS (1)
  - Drug level decreased [Unknown]
